FAERS Safety Report 10677966 (Version 1)
Quarter: 2014Q4

REPORT INFORMATION
  Report Type: Report from Study
  Country: US (occurrence: US)
  Receive Date: 20141229
  Receipt Date: 20141229
  Transmission Date: 20150529
  Serious: Yes (Other)
  Sender: FDA-Public Use
  Company Number: US-BIOGENIDEC-2014BI135696

PATIENT
  Age: 25 Year
  Sex: Female
  Weight: 87 kg

DRUGS (18)
  1. PROVENTIL HFA [Concomitant]
     Active Substance: ALBUTEROL SULFATE
     Route: 055
  2. MODAFINIL. [Concomitant]
     Active Substance: MODAFINIL
     Indication: FATIGUE
  3. AVONEX [Suspect]
     Active Substance: INTERFERON BETA-1A
     Indication: MULTIPLE SCLEROSIS
     Route: 030
     Dates: start: 20040121, end: 20141215
  4. CAMRESE 0.15-0.03 [Concomitant]
     Route: 048
  5. VENALAFAXINE HCI [Concomitant]
     Indication: DEPRESSION
     Dosage: ONE DAILY FOR 3 WEEKS THEN 2 EACH MORNING
     Route: 048
  6. METHYLPHENIDATE HCI [Concomitant]
     Active Substance: METHYLPHENIDATE HYDROCHLORIDE
     Indication: FATIGUE
     Route: 048
  7. METHYLPHENIDATE HCI [Concomitant]
     Active Substance: METHYLPHENIDATE HYDROCHLORIDE
     Indication: HYPERSOMNIA
     Route: 048
  8. TIZANIDINE HCI [Concomitant]
     Active Substance: TIZANIDINE HYDROCHLORIDE
     Indication: TENSION HEADACHE
     Route: 048
  9. DIAZEPAM. [Concomitant]
     Active Substance: DIAZEPAM
     Indication: TENSION HEADACHE
     Route: 048
  10. PREDNISONE. [Concomitant]
     Active Substance: PREDNISONE
     Indication: MULTIPLE SCLEROSIS RELAPSE
  11. METHYLPHENIDATE HCI [Concomitant]
     Active Substance: METHYLPHENIDATE HYDROCHLORIDE
     Indication: HYPERSOMNIA
     Route: 048
  12. VENALAFAXINE HCI [Concomitant]
     Indication: DEPRESSION
     Route: 048
  13. METHYLPHENIDATE HCI [Concomitant]
     Active Substance: METHYLPHENIDATE HYDROCHLORIDE
     Indication: FATIGUE
     Route: 048
  14. TRAZODONE [Concomitant]
     Active Substance: TRAZODONE HYDROCHLORIDE
     Indication: INSOMNIA
     Route: 048
  15. VENALAFAXINE HCI [Concomitant]
     Indication: DEPRESSION
     Dosage: 2 EACH MORNING
     Route: 048
  16. AVONEX [Suspect]
     Active Substance: INTERFERON BETA-1A
     Indication: MULTIPLE SCLEROSIS
     Route: 030
  17. TYLENOL [Concomitant]
     Active Substance: ACETAMINOPHEN
  18. MEDROL [Concomitant]
     Active Substance: METHYLPREDNISOLONE
     Indication: MULTIPLE SCLEROSIS RELAPSE
     Route: 048

REACTIONS (4)
  - Traumatic intracranial haemorrhage [Unknown]
  - Head injury [Recovered/Resolved]
  - Fall [Recovered/Resolved]
  - Seizure [Unknown]

NARRATIVE: CASE EVENT DATE: 200604
